FAERS Safety Report 20103788 (Version 1)
Quarter: 2021Q4

REPORT INFORMATION
  Report Type: Spontaneous
  Country: FR (occurrence: FR)
  Receive Date: 20211123
  Receipt Date: 20211123
  Transmission Date: 20220304
  Serious: Yes (Death, Life-Threatening, Hospitalization, Other)
  Sender: FDA-Public Use
  Company Number: FR-AstraZeneca-2021A728073

PATIENT
  Age: 72 Year
  Sex: Female

DRUGS (22)
  1. METFORMIN [Suspect]
     Active Substance: METFORMIN HYDROCHLORIDE
     Indication: Product used for unknown indication
     Dosage: UNK
  2. XIGDUO XR [Suspect]
     Active Substance: DAPAGLIFLOZIN PROPANEDIOL\METFORMIN HYDROCHLORIDE
     Indication: Type 2 diabetes mellitus
     Dosage: UNK
     Route: 048
  3. MEROPENEM [Concomitant]
     Active Substance: MEROPENEM
     Dosage: 100 MILLIGRAM
  4. AMIKLIN                            /00391001/ [Concomitant]
     Dosage: 3 MILLIGRAM
  5. AMIKLIN                            /00391001/ [Concomitant]
     Dosage: 100 MILLIGRAM
  6. FUROSEMIDE [Concomitant]
     Active Substance: FUROSEMIDE
     Dosage: 250 MILLIGRAM, QD
  7. CANDESARTAN [Concomitant]
     Active Substance: CANDESARTAN
     Dosage: 4 MILLIGRAM, QD
  8. ROVAMYCINE                         /00074401/ [Concomitant]
     Dosage: 100 MILLIGRAM
  9. INSPRA                             /01613601/ [Concomitant]
     Dosage: 25 MILLIGRAM, QD
  10. NORADRENALIN                       /00127503/ [Concomitant]
     Dosage: 100 MILLIGRAM
  11. DABIGATRAN [Concomitant]
     Active Substance: DABIGATRAN
     Dosage: 100 MILLIGRAM
  12. NEBIVOLOL [Concomitant]
     Active Substance: NEBIVOLOL
     Dosage: 5 MILLIGRAM, QD
  13. CEFTRIAXONE [Concomitant]
     Active Substance: CEFTRIAXONE
     Dosage: 100 MILLIGRAM
  14. CIPROFLOXACINE                     /00697201/ [Concomitant]
     Dosage: 100 MILLIGRAM
  15. ATORVASTATINE                      /01326101/ [Concomitant]
     Dosage: 20 MILLIGRAM, QD
  16. ETOMIDATE [Concomitant]
     Active Substance: ETOMIDATE
     Dosage: 50 MILLIGRAM
  17. HYDROCORTISONE [Concomitant]
     Active Substance: HYDROCORTISONE
     Dosage: 100 MILLIGRAM
  18. KARDEGIC [Concomitant]
     Active Substance: ASPIRIN DL-LYSINE
     Dosage: 75 MILLIGRAM, QD
  19. CEFTRIAXONE SODIUM [Concomitant]
     Active Substance: CEFTRIAXONE SODIUM
     Dosage: 2 MILLIGRAM
  20. GLICLAZIDE [Concomitant]
     Active Substance: GLICLAZIDE
     Dosage: UNK (A HALF TO 4 TABLETS IN BREAKFAST AND IN THE END)
  21. PRADAXA [Concomitant]
     Active Substance: DABIGATRAN ETEXILATE MESYLATE
     Dosage: UNK (1 TABLET TWICE DAILY)
  22. CELOCURINE                         /00057702/ [Concomitant]
     Dosage: 100 MILLIGRAM

REACTIONS (8)
  - Cardiac failure acute [Fatal]
  - Septic shock [Fatal]
  - Toxicity to various agents [Fatal]
  - Hepatic failure [Fatal]
  - Renal failure [Fatal]
  - Pyelonephritis [Fatal]
  - Haemodynamic instability [Fatal]
  - Microcytic anaemia [Unknown]

NARRATIVE: CASE EVENT DATE: 20210524
